FAERS Safety Report 6657849-4 (Version None)
Quarter: 2010Q1

REPORT INFORMATION
  Report Type: 
  Country: None (occurrence: None)
  Receive Date: 20100330
  Receipt Date: 20100317
  Transmission Date: 20100710
  Serious: Yes (Hospitalization)
  Sender: FDA-Public Use
  Company Number: HK-ROCHE-686281

PATIENT
  Sex: Female
  Weight: 45.6 kg

DRUGS (15)
  1. BEVACIZUMAB [Suspect]
     Indication: BREAST CANCER
     Dosage: DISCONTINUED, FORM: VIAL, DOSE LEVEL: 15 MG/KG
     Route: 042
     Dates: start: 20091211, end: 20100107
  2. TRASTUZUMAB [Suspect]
     Indication: BREAST CANCER
     Dosage: LOADING DOSE
     Route: 042
     Dates: start: 20091211
  3. TRASTUZUMAB [Suspect]
     Dosage: MAINTENANCE DOSE, DISCONTINUED, FORM: VIAL, DOSE LEVEL: 6 MG/KG
     Route: 042
     Dates: end: 20100128
  4. DOCETAXEL [Suspect]
     Indication: BREAST CANCER
     Dosage: DISCONTINUED, FORM: VIALS, DOSE LEVEL:75 MG/M2
     Route: 042
     Dates: start: 20091211, end: 20100128
  5. DOCETAXEL [Suspect]
     Dosage: RESTARTED
     Route: 042
     Dates: start: 20100304
  6. CARBOPLATIN [Suspect]
     Indication: BREAST CANCER
     Dosage: DOSE REPORTED: 6 AUC , DISCONTINUED, DOSE LEVEL: 6 AUC, FORM:VIAL
     Route: 042
     Dates: start: 20091211, end: 20100128
  7. CARBOPLATIN [Suspect]
     Dosage: RESTARTED
     Route: 042
     Dates: start: 20100304
  8. INDAPAMIDE [Concomitant]
     Dates: start: 20091208, end: 20091217
  9. DEXAMETHASONE [Concomitant]
     Dates: start: 20091210, end: 20091212
  10. NEUPOGEN [Concomitant]
     Dosage: TOTAL DAILY DOSE REPORTED: 30 MU, DRUG REPORTED: FILGRASTIM (G-CSF)
     Dates: start: 20091215, end: 20091220
  11. NEUPOGEN [Concomitant]
     Dosage: TOTAL DAILY DOSE REPORTED: 30 MU, DRUG REPORTED: FILGRASTIM (G-CSF)
     Dates: start: 20100201, end: 20100207
  12. METOCLOPRAMIDE HCL [Concomitant]
     Dates: start: 20091211
  13. ATENOLOL [Concomitant]
     Dates: start: 19970101, end: 20091202
  14. ATENOLOL [Concomitant]
     Dates: start: 20091204, end: 20091208
  15. ATENOLOL [Concomitant]
     Dates: start: 20091230

REACTIONS (1)
  - MYOCARDIAL ISCHAEMIA [None]
